FAERS Safety Report 5739491-2 (Version None)
Quarter: 2008Q2

REPORT INFORMATION
  Report Type: 
  Country: None (occurrence: None)
  Receive Date: 20080513
  Receipt Date: 20080508
  Transmission Date: 20081010
  Serious: Yes (Life-Threatening, Other)
  Sender: FDA-Public Use
  Company Number: IBF20080001

PATIENT
  Age: 38 Year
  Sex: Male

DRUGS (1)
  1. IBUPROFEN [Suspect]
     Indication: PROCEDURAL PAIN
     Dosage: 600 MG TID, PO
     Route: 048

REACTIONS (5)
  - BLOOD PRESSURE INCREASED [None]
  - GENERAL PHYSICAL HEALTH DETERIORATION [None]
  - NON-CARDIOGENIC PULMONARY OEDEMA [None]
  - PLEURAL EFFUSION [None]
  - THERAPEUTIC RESPONSE DECREASED [None]
